FAERS Safety Report 15772254 (Version 4)
Quarter: 2019Q1

REPORT INFORMATION
  Report Type: Report from Study
  Country: None (occurrence: JP)
  Receive Date: 20181228
  Receipt Date: 20190206
  Transmission Date: 20190417
  Serious: Yes (Hospitalization)
  Sender: FDA-Public Use
  Company Number: JP-ABBVIE-18P-087-2604339-00

PATIENT
  Age: 69 Year
  Sex: Male
  Weight: 58.5 kg

DRUGS (29)
  1. VENETOCLAX. [Suspect]
     Active Substance: VENETOCLAX
     Indication: PLASMA CELL MYELOMA
     Route: 048
     Dates: start: 20171031, end: 20171226
  2. REPLAS 1 INJECTION [Concomitant]
     Indication: ELECTROLYTE SUBSTITUTION THERAPY
     Route: 041
     Dates: start: 20181223, end: 20181223
  3. VENETOCLAX. [Suspect]
     Active Substance: VENETOCLAX
     Route: 048
     Dates: start: 20180130, end: 20181222
  4. BORTEZOMIB. [Suspect]
     Active Substance: BORTEZOMIB
     Indication: PLASMA CELL MYELOMA
     Dosage: DAYS 1,4,8 AND 11 IN CYCLES 1-8, DAYS 1,8,15 AND 22 CYCLE 9 AND BEYOND
     Route: 058
     Dates: start: 20171031, end: 20180109
  5. BORTEZOMIB. [Suspect]
     Active Substance: BORTEZOMIB
     Dosage: DAYS 1,4,8 AND 11 IN CYCLES 1-8, DAYS 1,8,15 AND 22 CYCLE 9 AND BEYOND
     Route: 058
     Dates: start: 20180130, end: 20180209
  6. MAGNESIUM OXIDE. [Concomitant]
     Active Substance: MAGNESIUM OXIDE
     Indication: CONSTIPATION
     Route: 048
     Dates: start: 20171110
  7. EPINASTINE HYDROCHLORIDE. [Concomitant]
     Active Substance: EPINASTINE HYDROCHLORIDE
     Route: 048
     Dates: start: 20180703
  8. BISOPROLOL FUMARATE. [Concomitant]
     Active Substance: BISOPROLOL FUMARATE
     Indication: ATRIAL FIBRILLATION
     Route: 048
     Dates: start: 20180116
  9. EDOXABAN TOSILATE HYDRATE [Concomitant]
     Active Substance: EDOXABAN TOSYLATE
     Indication: ATRIAL FIBRILLATION
     Route: 048
     Dates: start: 20180116
  10. BETAMETHASONE VALERATE. [Concomitant]
     Active Substance: BETAMETHASONE VALERATE
     Indication: PRURITUS
     Route: 061
     Dates: start: 20180717
  11. BFLUID INJECTION [Concomitant]
     Active Substance: AMINO ACIDS\DEXTROSE\ELECTROLYTES NOS\VITAMINS
     Indication: ELECTROLYTE SUBSTITUTION THERAPY
     Route: 041
     Dates: start: 20181223, end: 20181231
  12. DEXAMETHASONE. [Suspect]
     Active Substance: DEXAMETHASONE
     Indication: PLASMA CELL MYELOMA
     Dosage: DAYS 1,2,4,5,8,9,11 AND 12 IN CYCLE 1-8 + 1,2,8,9,15,16,22, + 23 CYCLES 9 AND BEYOND
     Route: 048
     Dates: start: 20171031, end: 20181212
  13. AMLODIPINE [Concomitant]
     Active Substance: AMLODIPINE BESYLATE
     Indication: HYPERTENSION
     Route: 048
     Dates: start: 20171024, end: 20180112
  14. REBAMIPIDE [Concomitant]
     Active Substance: REBAMIPIDE
     Indication: GASTRITIS PROPHYLAXIS
     Route: 048
     Dates: start: 20170328
  15. AMLODIPINE [Concomitant]
     Active Substance: AMLODIPINE BESYLATE
     Route: 048
     Dates: start: 20180213
  16. VALACICLOVIR [Concomitant]
     Active Substance: VALACYCLOVIR HYDROCHLORIDE
     Indication: HERPES ZOSTER
     Route: 048
     Dates: start: 20171030
  17. VENETOCLAX. [Suspect]
     Active Substance: VENETOCLAX
     Route: 048
     Dates: start: 20180105, end: 20180111
  18. VENETOCLAX. [Suspect]
     Active Substance: VENETOCLAX
     Route: 048
     Dates: start: 20190129
  19. SENNOSIDE A/B CALCIUM [Concomitant]
     Indication: CONSTIPATION
     Dosage: 12-24 MG
     Route: 048
     Dates: start: 20171107
  20. ETIZOLAM [Concomitant]
     Active Substance: ETIZOLAM
     Indication: INSOMNIA
     Route: 048
     Dates: start: 20170310
  21. EPINASTINE HYDROCHLORIDE. [Concomitant]
     Active Substance: EPINASTINE HYDROCHLORIDE
     Indication: PRURITUS
     Route: 048
     Dates: start: 20171121, end: 20171219
  22. D-CHLORPHENIRAMINE MALEATE [Concomitant]
     Active Substance: DEXCHLORPHENIRAMINE MALEATE
     Route: 048
     Dates: start: 20180703
  23. BORTEZOMIB. [Suspect]
     Active Substance: BORTEZOMIB
     Dosage: DAYS 1,4,8 AND 11 IN CYCLES 1-8, DAYS 1,8,15 AND 22 CYCLE 9 AND BEYOND
     Route: 058
     Dates: start: 20180220, end: 20181127
  24. SOLDEM 3A [Concomitant]
     Active Substance: CARBOHYDRATES\POTASSIUM CHLORIDE\SODIUM CHLORIDE\SODIUM LACTATE
     Indication: ELECTROLYTE SUBSTITUTION THERAPY
     Route: 041
     Dates: start: 20181224, end: 20181231
  25. K-SUPPLY [Concomitant]
     Active Substance: POTASSIUM CHLORIDE
     Indication: ELECTROLYTE SUBSTITUTION THERAPY
     Route: 048
     Dates: start: 20181227, end: 20181229
  26. BORTEZOMIB. [Suspect]
     Active Substance: BORTEZOMIB
     Dosage: DAYS 1,4,8 AND 11 IN CYCLES 1-8, DAYS 1,8,15 AND 22 CYCLE 9 AND BEYOND
     Route: 058
     Dates: start: 20181204, end: 20181211
  27. BORTEZOMIB. [Suspect]
     Active Substance: BORTEZOMIB
     Dosage: DAYS 1,4,8 AND 11 IN CYCLES 1-8, DAYS 1,8,15 AND 22 CYCLE 9 AND BEYOND
     Route: 058
     Dates: start: 20190129
  28. VALACICLOVIR [Concomitant]
     Active Substance: VALACYCLOVIR HYDROCHLORIDE
     Indication: PROPHYLAXIS
  29. D-CHLORPHENIRAMINE MALEATE [Concomitant]
     Active Substance: DEXCHLORPHENIRAMINE MALEATE
     Indication: PRURITUS
     Route: 048
     Dates: start: 20171121, end: 20180209

REACTIONS (1)
  - Pneumonia [Recovered/Resolved]

NARRATIVE: CASE EVENT DATE: 20181223
